FAERS Safety Report 5301353-2 (Version None)
Quarter: 2007Q2

REPORT INFORMATION
  Report Type: 
  Country: None (occurrence: None)
  Receive Date: 20070418
  Receipt Date: 20070407
  Transmission Date: 20071010
  Serious: Yes (Other)
  Sender: FDA-Public Use
  Company Number: US-PFIZER INC-2007028532

PATIENT
  Sex: Male
  Weight: 88.5 kg

DRUGS (2)
  1. CHANTIX [Suspect]
     Indication: SMOKING CESSATION THERAPY
     Route: 048
  2. AVELOX [Suspect]

REACTIONS (5)
  - APHTHOUS STOMATITIS [None]
  - DRY MOUTH [None]
  - DYSPHAGIA [None]
  - PAIN [None]
  - PNEUMONIA [None]
